FAERS Safety Report 9304183 (Version 1)
Quarter: 2013Q2

REPORT INFORMATION
  Report Type: Spontaneous
  Country: DE (occurrence: DE)
  Receive Date: 20130522
  Receipt Date: 20130522
  Transmission Date: 20140414
  Serious: Yes (Other)
  Sender: FDA-Public Use
  Company Number: DE-PFIZER INC-2013151571

PATIENT
  Sex: Male

DRUGS (4)
  1. XALATAN [Suspect]
     Indication: INTRAOCULAR PRESSURE INCREASED
     Dosage: UNK GTT, BOTH EYES
     Dates: start: 2003
  2. XALATAN [Suspect]
     Dosage: UNK GTT, BOTH EYES, EVERY SECOND DAY
  3. EUPHRASIA EXTRACT [Concomitant]
     Indication: HYPERSENSITIVITY
  4. LACOPHTAL [Concomitant]
     Indication: DRY EYE

REACTIONS (2)
  - Optic nerve disorder [Unknown]
  - Incorrect storage of drug [Unknown]
